FAERS Safety Report 16215688 (Version 2)
Quarter: 2019Q2

REPORT INFORMATION
  Report Type: Spontaneous
  Country: US (occurrence: US)
  Receive Date: 20190419
  Receipt Date: 20190422
  Transmission Date: 20190711
  Serious: No
  Sender: FDA-Public Use
  Company Number: US-JNJFOC-20190331438

PATIENT
  Sex: Female
  Weight: 65.77 kg

DRUGS (5)
  1. MENS ROGAINE [Suspect]
     Active Substance: MINOXIDIL
     Indication: ALOPECIA
     Dosage: AS NEEDED EVERYDAY
     Route: 061
  2. MENS ROGAINE EXTRA STRENGTH [Suspect]
     Active Substance: MINOXIDIL
     Indication: ALOPECIA
     Dosage: AS DIRECTED EVERYDAY
     Route: 061
  3. MENS ROGAINE EXTRA STRENGTH [Suspect]
     Active Substance: MINOXIDIL
     Route: 061
  4. MENS ROGAINE [Suspect]
     Active Substance: MINOXIDIL
     Route: 061
  5. PRILOSEC [Concomitant]
     Active Substance: OMEPRAZOLE MAGNESIUM
     Indication: PRODUCT USED FOR UNKNOWN INDICATION
     Route: 065

REACTIONS (4)
  - Hair colour changes [Not Recovered/Not Resolved]
  - Product use issue [Unknown]
  - Intentional product misuse [Unknown]
  - Product use in unapproved indication [Unknown]
